FAERS Safety Report 10387373 (Version 1)
Quarter: 2014Q3

REPORT INFORMATION
  Report Type: Spontaneous
  Country: CA (occurrence: CA)
  Receive Date: 20140815
  Receipt Date: 20140815
  Transmission Date: 20150326
  Serious: Yes (Hospitalization, Other)
  Sender: FDA-Public Use
  Company Number: CA-ASTELLAS-2014US010077

PATIENT
  Sex: Female

DRUGS (1)
  1. ADVAGRAF [Suspect]
     Active Substance: TACROLIMUS
     Indication: RENAL TRANSPLANT
     Route: 048
     Dates: start: 20140511, end: 201405

REACTIONS (7)
  - Coronary artery occlusion [Not Recovered/Not Resolved]
  - Blood pressure increased [Unknown]
  - Blood glucose increased [Unknown]
  - Renal failure [Unknown]
  - Vascular occlusion [Not Recovered/Not Resolved]
  - Fatigue [Not Recovered/Not Resolved]
  - Pyrexia [Unknown]
